FAERS Safety Report 5762813-3 (Version None)
Quarter: 2008Q2

REPORT INFORMATION
  Report Type: 
  Country: None (occurrence: None)
  Receive Date: 20080609
  Receipt Date: 20080530
  Transmission Date: 20081010
  Serious: Yes (Other)
  Sender: FDA-Public Use
  Company Number: ES-GILEAD-2008-0016699

PATIENT
  Age: 32 Year
  Sex: Male

DRUGS (4)
  1. VIREAD [Suspect]
     Dates: start: 20070131
  2. LAMIVUDINE [Concomitant]
     Dates: start: 20070131
  3. EFAVIRENZ [Concomitant]
     Dates: start: 20070131
  4. LOPINAVIR AND RITONAVIR [Concomitant]

REACTIONS (8)
  - ABDOMINAL DISTENSION [None]
  - ANAEMIA [None]
  - HEPATOMEGALY [None]
  - IMMUNE RECONSTITUTION SYNDROME [None]
  - LEISHMANIASIS [None]
  - PYREXIA [None]
  - SKIN REACTION [None]
  - SPLENOMEGALY [None]
